FAERS Safety Report 9909579 (Version 2)
Quarter: 2014Q1

REPORT INFORMATION
  Report Type: Spontaneous
  Country: US (occurrence: US)
  Receive Date: 20140219
  Receipt Date: 20140317
  Transmission Date: 20141002
  Serious: Yes (Other)
  Sender: FDA-Public Use
  Company Number: US-PFIZER INC-2014046555

PATIENT
  Sex: Female

DRUGS (1)
  1. NEURONTIN [Suspect]
     Dosage: UNK

REACTIONS (7)
  - Multiple sclerosis [Unknown]
  - Back disorder [Unknown]
  - Arthropathy [Unknown]
  - Osteomyelitis [Unknown]
  - Neuroma [Unknown]
  - Abdominal discomfort [Unknown]
  - Fibromyalgia [Unknown]
